FAERS Safety Report 4899994-X (Version None)
Quarter: 2006Q1

REPORT INFORMATION
  Report Type: 
  Country: None (occurrence: None)
  Receive Date: 20060201
  Receipt Date: 20060113
  Transmission Date: 20060701
  Serious: Yes (Hospitalization, Disabling, Other)
  Sender: FDA-Public Use
  Company Number: USA040773559

PATIENT
  Age: 59 Year
  Sex: Female
  Weight: 154.5 kg

DRUGS (2)
  1. HUMULIN L [Suspect]
     Indication: DIABETES MELLITUS
     Dosage: SEE IMAGE
     Dates: start: 19860101
  2. LASIX [Concomitant]

REACTIONS (10)
  - ASTHENOPIA [None]
  - BLINDNESS UNILATERAL [None]
  - CARDIAC FAILURE CONGESTIVE [None]
  - CATARACT OPERATION [None]
  - DIFFICULTY IN WALKING [None]
  - EYE HAEMORRHAGE [None]
  - MEMORY IMPAIRMENT [None]
  - PHARMACEUTICAL PRODUCT COMPLAINT [None]
  - SLEEP APNOEA SYNDROME [None]
  - VISUAL FIELD DEFECT [None]
